FAERS Safety Report 8337647-6 (Version None)
Quarter: 2012Q2

REPORT INFORMATION
  Report Type: 
  Country: None (occurrence: None)
  Receive Date: 20120504
  Receipt Date: 20120504
  Transmission Date: 20120825
  Serious: Yes (Other)
  Sender: FDA-Public Use
  Company Number: None

PATIENT
  Sex: Female

DRUGS (5)
  1. OMEPRAZOLE [Concomitant]
  2. CYMBALTA [Suspect]
     Indication: PAIN
     Dosage: |DOSAGETEXT: ONE A DAY||STRENGTH: 30MG||ROUTE: ORAL|
     Route: 048
     Dates: start: 20120110, end: 20120115
  3. CLONAZEPAM [Concomitant]
     Route: 048
  4. LIPITOR [Concomitant]
     Route: 048
  5. PREMARIN [Concomitant]
     Route: 061

REACTIONS (5)
  - DEPRESSION [None]
  - STOMATITIS [None]
  - COGNITIVE DISORDER [None]
  - TREMOR [None]
  - MENTAL IMPAIRMENT [None]
